FAERS Safety Report 8959226 (Version 3)
Quarter: 2014Q2

REPORT INFORMATION
  Report Type: Report from Study
  Country: US (occurrence: US)
  Receive Date: 20121212
  Receipt Date: 20140529
  Transmission Date: 20141212
  Serious: Yes (Hospitalization)
  Sender: FDA-Public Use
  Company Number: US-BIOGENIDEC-2012BI058947

PATIENT
  Age: 65 Year
  Sex: Female

DRUGS (4)
  1. AVONEX [Suspect]
     Indication: MULTIPLE SCLEROSIS
     Route: 030
     Dates: start: 20061101, end: 20080930
  2. AVONEX [Suspect]
     Indication: MULTIPLE SCLEROSIS
     Route: 030
     Dates: start: 20090405, end: 201301
  3. AVONEX [Suspect]
     Indication: MULTIPLE SCLEROSIS
     Route: 030
     Dates: start: 201302
  4. COPAXONE [Concomitant]

REACTIONS (10)
  - Spinal fusion surgery [Recovered/Resolved]
  - Central nervous system lesion [Unknown]
  - Stress [Unknown]
  - Peroneal nerve palsy postoperative [Unknown]
  - Balance disorder [Unknown]
  - Back pain [Not Recovered/Not Resolved]
  - Gait disturbance [Not Recovered/Not Resolved]
  - Injection site scar [Not Recovered/Not Resolved]
  - Sciatica [Not Recovered/Not Resolved]
  - Multiple sclerosis relapse [Recovered/Resolved]
